FAERS Safety Report 14853733 (Version 2)
Quarter: 2018Q2

REPORT INFORMATION
  Report Type: Spontaneous
  Country: TR (occurrence: TR)
  Receive Date: 20180507
  Receipt Date: 20180516
  Transmission Date: 20180711
  Serious: Yes (Death)
  Sender: FDA-Public Use
  Company Number: TR-PFIZER INC-2018183601

PATIENT
  Sex: Male

DRUGS (6)
  1. XARELTO [Concomitant]
     Active Substance: RIVAROXABAN
     Dosage: 15 MG, UNK
  2. BELOC /00376903/ [Concomitant]
     Active Substance: METOPROLOL TARTRATE
     Dosage: 25 MG, UNK
  3. LYRICA [Concomitant]
     Active Substance: PREGABALIN
     Dosage: 25 MG, UNK
  4. VFEND [Suspect]
     Active Substance: VORICONAZOLE
     Dosage: UNK
     Dates: start: 201801
  5. AVELOX [Concomitant]
     Active Substance: MOXIFLOXACIN HYDROCHLORIDE
     Dosage: UNK
  6. VALTREX [Concomitant]
     Active Substance: VALACYCLOVIR HYDROCHLORIDE
     Dosage: UNK

REACTIONS (1)
  - Death [Fatal]

NARRATIVE: CASE EVENT DATE: 201803
